FAERS Safety Report 8660101 (Version 5)
Quarter: 2012Q4

REPORT INFORMATION
  Report Type: 
  Country: US (occurrence: US)
  Receive Date: 20120711
  Receipt Date: 20121023
  Transmission Date: 20130627
  Serious: Yes (Death, Other)
  Sender: FDA-Public Use
  Company Number: US-PFIZER INC-2012162384

PATIENT
  Age: 79 Year
  Sex: Male

DRUGS (2)
  1. XALKORI [Suspect]
     Indication: LUNG NEOPLASM MALIGNANT
     Dosage: 250 mg, 2x/day
  2. XALKORI [Suspect]
     Dosage: 200 mg, 2x/day (Twice Daily)

REACTIONS (3)
  - Death [Fatal]
  - Heart rate decreased [Unknown]
  - Electrocardiogram QT prolonged [Unknown]
